FAERS Safety Report 8249515-9 (Version None)
Quarter: 2012Q1

REPORT INFORMATION
  Report Type: 
  Country: None (occurrence: None)
  Receive Date: 20120316
  Receipt Date: 20101116
  Transmission Date: 20120608
  Serious: Yes (Hospitalization, Other)
  Sender: FDA-Public Use
  Company Number: PHHY2010US78290

PATIENT
  Sex: Female

DRUGS (2)
  1. DIOVAN [Suspect]
  2. TEKTURNA [Suspect]
     Indication: HYPERTENSION
     Dosage: 150 MG, QD
     Dates: start: 20101101, end: 20101101

REACTIONS (1)
  - BLOOD POTASSIUM INCREASED [None]
